FAERS Safety Report 13462771 (Version 3)
Quarter: 2017Q2

REPORT INFORMATION
  Report Type: Spontaneous
  Country: US (occurrence: US)
  Receive Date: 20170420
  Receipt Date: 20170628
  Transmission Date: 20170830
  Serious: Yes (Other)
  Sender: FDA-Public Use
  Company Number: US-PFIZER INC-2017169087

PATIENT
  Age: 20 Year
  Sex: Female
  Weight: 68 kg

DRUGS (2)
  1. DEPO-PROVERA [Suspect]
     Active Substance: MEDROXYPROGESTERONE ACETATE
     Indication: CONTRACEPTION
     Dosage: UNK
     Dates: start: 20161106, end: 20161106
  2. GABAPENTIN. [Concomitant]
     Active Substance: GABAPENTIN
     Indication: NEURALGIA
     Dosage: UNK

REACTIONS (14)
  - Intervertebral disc protrusion [Unknown]
  - Mood swings [Not Recovered/Not Resolved]
  - Anxiety [Unknown]
  - Eye pain [Not Recovered/Not Resolved]
  - Urinary tract infection [Recovered/Resolved with Sequelae]
  - Depression [Not Recovered/Not Resolved]
  - Muscle twitching [Not Recovered/Not Resolved]
  - Back pain [Not Recovered/Not Resolved]
  - Breast pain [Not Recovered/Not Resolved]
  - Balance disorder [Not Recovered/Not Resolved]
  - Polycystic ovaries [Unknown]
  - Paraesthesia [Unknown]
  - Nerve compression [Unknown]
  - Bone pain [Not Recovered/Not Resolved]

NARRATIVE: CASE EVENT DATE: 2016
